FAERS Safety Report 8259214-5 (Version None)
Quarter: 2012Q2

REPORT INFORMATION
  Report Type: 
  Country: None (occurrence: None)
  Receive Date: 20120404
  Receipt Date: 20120329
  Transmission Date: 20120825
  Serious: Yes (Other)
  Sender: FDA-Public Use
  Company Number: TR-PFIZER INC-2012081062

PATIENT
  Age: 15 Month
  Sex: Male
  Weight: 11 kg

DRUGS (1)
  1. MOROCTOCOG ALFA [Suspect]
     Indication: FACTOR VIII DEFICIENCY
     Dosage: 500 IU, WEEKLY
     Dates: start: 20110919

REACTIONS (1)
  - FACTOR VIII INHIBITION [None]
